FAERS Safety Report 8960353 (Version 1)
Quarter: 2012Q4

REPORT INFORMATION
  Report Type: 
  Country: US (occurrence: US)
  Receive Date: 20121212
  Receipt Date: 20121212
  Transmission Date: 20130627
  Serious: Yes (Other)
  Sender: FDA-Public Use
  Company Number: US-BAYER-2012-129647

PATIENT
  Age: 27 Year
  Sex: Female
  Weight: 82.99 kg

DRUGS (11)
  1. YAZ [Suspect]
  2. YASMIN [Suspect]
  3. PIROXICAM [Concomitant]
  4. TRAMADOL HYDROCHLORIDE [Concomitant]
  5. IBUPROFEN [Concomitant]
  6. FLUTICASONE PROPIONATE [Concomitant]
  7. LORATADINE [Concomitant]
  8. ALBUTEROL SULFATE [Concomitant]
  9. BUTALBITAL, ACETAMINOPHEN + CAFFEINE [Concomitant]
  10. ELAVIL [Concomitant]
     Indication: MIGRAINE
  11. ORAL CONTRACEPTIVE NOS [Concomitant]

REACTIONS (1)
  - Pulmonary embolism [None]
